FAERS Safety Report 8334545-9 (Version None)
Quarter: 2012Q2

REPORT INFORMATION
  Report Type: 
  Country: None (occurrence: None)
  Receive Date: 20120503
  Receipt Date: 20120429
  Transmission Date: 20120825
  Serious: Yes (Hospitalization)
  Sender: FDA-Public Use
  Company Number: CA-AMGEN-CANCT2012020982

PATIENT
  Age: 67 Year
  Sex: Male

DRUGS (10)
  1. DENOSUMAB [Suspect]
     Indication: PROSTATE CANCER
     Dosage: 20 ML, QMO
     Route: 058
     Dates: start: 20110113
  2. CELEXIN [Concomitant]
     Dosage: UNK
     Route: 048
     Dates: start: 19930101
  3. ZOLADEX [Concomitant]
  4. CALCIUM [Concomitant]
     Dosage: 1 G, UNK
     Route: 048
     Dates: start: 20050101
  5. HYZAAR [Concomitant]
     Indication: HYPERTENSION
     Dosage: UNK
     Route: 048
     Dates: start: 20070209
  6. TYLENOL (CAPLET) [Concomitant]
     Indication: ARTHRALGIA
     Dosage: UNK UNK, PRN
     Route: 048
     Dates: start: 20110115
  7. CRESTOR [Concomitant]
     Dosage: 5 MG, QD
     Route: 048
     Dates: start: 20120214
  8. ASPIRIN [Concomitant]
     Dosage: 81 MG, QD
     Route: 048
     Dates: start: 20120214, end: 20120323
  9. VITAMIN D [Concomitant]
     Dosage: 200 IU, QD
     Route: 048
     Dates: start: 20050101
  10. IBUPROFEN (ADVIL) [Concomitant]
     Dosage: UNK UNK, BID
     Route: 048
     Dates: start: 20110115

REACTIONS (1)
  - FEMUR FRACTURE [None]
